FAERS Safety Report 9956911 (Version 1)
Quarter: 2014Q1

REPORT INFORMATION
  Report Type: Report from Study
  Country: US (occurrence: US)
  Receive Date: 20140304
  Receipt Date: 20140304
  Transmission Date: 20141002
  Serious: No
  Sender: FDA-Public Use
  Company Number: US-ABBVIE-13P-163-1099340-00

PATIENT
  Age: 18 Year
  Sex: Female

DRUGS (6)
  1. HUMIRA [Suspect]
     Indication: ANKYLOSING SPONDYLITIS
     Dates: start: 201203
  2. ONDANSETRON [Concomitant]
     Indication: NAUSEA
     Dosage: AS NEEDED
  3. ONDANSETRON [Concomitant]
     Indication: COLITIS ULCERATIVE
  4. ALBUTEROL [Concomitant]
     Indication: ASTHMA
  5. TYLENOL EXTRA STRENGTH [Concomitant]
     Indication: PAIN
  6. BCP [Concomitant]
     Indication: PRODUCT USED FOR UNKNOWN INDICATION
     Dosage: DAILY

REACTIONS (2)
  - Colitis ulcerative [Unknown]
  - Injection site haemorrhage [Recovered/Resolved]
